FAERS Safety Report 6115923-5 (Version None)
Quarter: 2009Q1

REPORT INFORMATION
  Report Type: 
  Country: None (occurrence: None)
  Receive Date: 20090311
  Receipt Date: 20090303
  Transmission Date: 20090719
  Serious: Yes (Disabling)
  Sender: FDA-Public Use
  Company Number: 2009SP004922

PATIENT
  Age: 70 Year
  Sex: Female
  Weight: 71 kg

DRUGS (9)
  1. BLINDED SCH 503034                (HCV PROTEASE INHIBITOR) [Suspect]
     Indication: HEPATITIS C
  2. PEG-INTRON [Suspect]
     Indication: HEPATITIS C
  3. RIBAVIRIN [Suspect]
     Indication: HEPATITIS C
  4. SPAGULAX [Concomitant]
  5. LEVOTHYROXINE SODIUM [Concomitant]
  6. TAREG [Concomitant]
  7. AERIUS [Concomitant]
  8. NEORECORMON [Concomitant]
  9. NULYTELY [Concomitant]

REACTIONS (1)
  - PARKINSONISM [None]
